FAERS Safety Report 19661336 (Version 2)
Quarter: 2021Q4

REPORT INFORMATION
  Report Type: Report from Study
  Country: FR (occurrence: FR)
  Receive Date: 20210805
  Receipt Date: 20211021
  Transmission Date: 20220303
  Serious: Yes (Death)
  Sender: FDA-Public Use
  Company Number: FR-ONCOPEPPR-00848

PATIENT
  Age: 77 Year
  Sex: Male

DRUGS (2)
  1. MELPHALAN FLUFENAMIDE [Suspect]
     Active Substance: MELPHALAN FLUFENAMIDE
     Indication: Plasma cell myeloma
     Route: 042
     Dates: start: 20210520, end: 20210520
  2. DEXAMETHASONE [Suspect]
     Active Substance: DEXAMETHASONE
     Indication: Plasma cell myeloma
     Route: 048
     Dates: start: 20210520, end: 20210520

REACTIONS (2)
  - Pleural effusion [Fatal]
  - Pyrexia [Fatal]

NARRATIVE: CASE EVENT DATE: 20210614
